FAERS Safety Report 7719558-X (Version None)
Quarter: 2011Q3

REPORT INFORMATION
  Report Type: 
  Country: None (occurrence: None)
  Receive Date: 20110830
  Receipt Date: 20110826
  Transmission Date: 20111222
  Serious: Yes (Other)
  Sender: FDA-Public Use
  Company Number: US-ABBOTT-11P-163-0849696-00

PATIENT
  Sex: Female
  Weight: 77.18 kg

DRUGS (3)
  1. LUPRON DEPOT [Suspect]
     Indication: ENDOMETRIOSIS
     Dates: start: 20110715, end: 20110715
  2. TRAMADOL HCL [Concomitant]
     Indication: PAIN
  3. LUPRON DEPOT [Suspect]
     Dosage: WAS TOLD IT WAS THE 2 MONTHS DOSE
     Dates: start: 20110809

REACTIONS (6)
  - ENDOMETRIOSIS [None]
  - MUSCULAR WEAKNESS [None]
  - HYPOAESTHESIA [None]
  - GASTROINTESTINAL DISORDER [None]
  - DRUG EFFECT DECREASED [None]
  - ACNE [None]
